FAERS Safety Report 11814201 (Version 4)
Quarter: 2016Q1

REPORT INFORMATION
  Report Type: Report from Study
  Country: US (occurrence: US)
  Receive Date: 20151209
  Receipt Date: 20160215
  Transmission Date: 20160525
  Serious: Yes (Other)
  Sender: FDA-Public Use
  Company Number: US-AMGEN-USASL2015119710

PATIENT
  Age: 75 Year
  Sex: Female

DRUGS (1)
  1. REPATHA [Suspect]
     Active Substance: EVOLOCUMAB
     Indication: HYPERCHOLESTEROLAEMIA
     Dosage: 140 MG, Q2WK
     Route: 065
     Dates: start: 20151118, end: 20151215

REACTIONS (9)
  - Muscular weakness [Unknown]
  - Gait disturbance [Unknown]
  - Adverse drug reaction [Unknown]
  - Muscle tightness [Unknown]
  - Feeling abnormal [Unknown]
  - Balance disorder [Unknown]
  - Device leakage [Unknown]
  - Wrong technique in product usage process [Recovered/Resolved]
  - Underdose [Unknown]

NARRATIVE: CASE EVENT DATE: 2015
